FAERS Safety Report 7313159-3 (Version None)
Quarter: 2011Q1

REPORT INFORMATION
  Report Type: 
  Country: None (occurrence: None)
  Receive Date: 20110225
  Receipt Date: 20110215
  Transmission Date: 20110831
  Serious: Yes (Hospitalization)
  Sender: FDA-Public Use
  Company Number: US-ELI_LILLY_AND_COMPANY-US201008002396

PATIENT
  Sex: Female

DRUGS (34)
  1. LYRICA [Concomitant]
     Dosage: 100 MG, UNKNOWN
     Dates: start: 20070929
  2. VITAMIN E [Concomitant]
     Dosage: 400 IU, ON OCCASION
  3. POLYGAM [Concomitant]
     Dates: start: 20060104
  4. TRICOR [Concomitant]
     Dosage: 145 MG, AT DINNER
     Dates: start: 20051125
  5. CYMBALTA [Concomitant]
     Dosage: 60 MG, DAILY (1/D)
     Dates: start: 20060315
  6. DITROPAN XL [Concomitant]
     Dosage: 5 MG, DAILY (1/D)
     Dates: start: 20090227
  7. ESTER-C [Concomitant]
     Dosage: 500 MG, 2/D
  8. AVAPRO [Concomitant]
     Dosage: 300 MG, DAILY (1/D)
  9. PROTONIX [Concomitant]
     Dosage: 40 MG, 1 BEFORE BREAKFAST AND 1 BEFORE DINNER
  10. LIDODERM [Concomitant]
     Dosage: 5 %, 3 DAILY AS NEEDED
     Dates: start: 20050725
  11. HYDROCHLOROTHIAZIDE [Concomitant]
     Dosage: 25 MG, DAILY (1/D)
  12. ZANTAC [Concomitant]
     Dosage: 300 MG, AT BEDTIME AS NEEDED
  13. METANX [Concomitant]
     Dosage: 1 D/F, DAILY (1/D)
     Dates: start: 20061120
  14. CENTRUM SILVER [Concomitant]
     Dosage: 1 D/F, DAILY (1/D)
  15. MELATONIN [Concomitant]
     Dosage: 3 MG, EACH EVENING AT BEDTIME
  16. HUMATROPE [Suspect]
     Dosage: 0.35 MG, DAILY (1/D)
     Route: 058
     Dates: start: 20100608
  17. GAMMAGARD [Concomitant]
     Dosage: 1 D/F, UNKNOWN
     Dates: start: 20061108
  18. SYNTHROID [Concomitant]
     Dosage: 75 MG, ON SATURDAY AND SUNDAY ONLY
  19. ASPIRIN [Concomitant]
     Dosage: 81 MG, DAILY (1/D)
  20. MAGNESIUM OXIDE [Concomitant]
     Dosage: 400 MG, 2 AT BEDTIME
  21. VAGIFEM [Concomitant]
     Dosage: 25 UG, 3/W
     Dates: start: 20060317
  22. LYRICA [Concomitant]
     Dosage: 75 MG, 2/D
     Dates: start: 20060920
  23. OSCAL 500-D [Concomitant]
     Dosage: 1 D/F, 2/D
  24. HUMATROPE [Suspect]
     Dosage: 0.4 MG, DAILY (1/D)
     Route: 058
  25. GAMMAGARD [Concomitant]
     Dosage: 35 G, UNKNOWN
     Dates: start: 20080102
  26. SYNTHROID [Concomitant]
     Dosage: 50 MG, 1 A DAY ON WEEKDAYS
  27. CELEBREX [Concomitant]
     Dosage: 200 MG, DAILY (1/D)
  28. VITAMIN D [Concomitant]
     Dosage: 50000 IU, EVERY OTHER WEEK
  29. VAGIFEM [Concomitant]
     Dosage: 10 UG, 3/D
  30. HUMATROPE [Suspect]
     Indication: GROWTH HORMONE DEFICIENCY
     Dosage: 0.2 MG, DAILY (1/D)
     Route: 058
  31. EVOXAC [Concomitant]
     Dosage: 30 MG, 3/D
  32. CORMAX [Concomitant]
     Dosage: 45 G, 2 TIMES DAILY AS NEEDED
  33. TAZORAC [Concomitant]
     Dosage: 60 G, 1 TIME A DAY, WEEK DAYS, AS NEEDED
  34. FERROUS SULFATE TAB [Concomitant]
     Dosage: 325 MG, DAILY (1/D)

REACTIONS (5)
  - PROCEDURAL PAIN [None]
  - ANGER [None]
  - TENDON INJURY [None]
  - INSULIN-LIKE GROWTH FACTOR INCREASED [None]
  - OSTEOARTHRITIS [None]
